FAERS Safety Report 5843986-0 (Version None)
Quarter: 2008Q3

REPORT INFORMATION
  Report Type: 
  Country: None (occurrence: None)
  Receive Date: 20080813
  Receipt Date: 20080806
  Transmission Date: 20090109
  Serious: Yes (Other)
  Sender: FDA-Public Use
  Company Number: US-JNJCH-2008019668

PATIENT
  Sex: Male
  Weight: 86.2 kg

DRUGS (1)
  1. LISTERINE VANILLA MINT [Suspect]
     Indication: DENTAL DISORDER PROPHYLAXIS
     Dosage: TEXT:HALF OF A CAPFUL ONCE A DAY
     Route: 048
     Dates: start: 20070101, end: 20080722

REACTIONS (4)
  - APPLICATION SITE BURN [None]
  - CHAPPED LIPS [None]
  - PHARMACEUTICAL PRODUCT COMPLAINT [None]
  - TONGUE DISORDER [None]
